FAERS Safety Report 20656691 (Version 4)
Quarter: 2022Q3

REPORT INFORMATION
  Report Type: Report from Study
  Country: US (occurrence: US)
  Receive Date: 20220331
  Receipt Date: 20220929
  Transmission Date: 20221026
  Serious: No
  Sender: FDA-Public Use
  Company Number: US-NOVARTISTESTPH-NVSC2022US072583

PATIENT
  Age: 70 Year
  Sex: Female

DRUGS (1)
  1. COSENTYX [Suspect]
     Active Substance: SECUKINUMAB
     Indication: Psoriasis
     Dosage: 300 MG, QMO
     Route: 058
     Dates: start: 202111, end: 202202

REACTIONS (5)
  - White blood cell count abnormal [Unknown]
  - Blister [Unknown]
  - Hypersensitivity [Unknown]
  - Pruritus [Unknown]
  - Device malfunction [Unknown]

NARRATIVE: CASE EVENT DATE: 20211207
